FAERS Safety Report 8046272-6 (Version None)
Quarter: 2012Q1

REPORT INFORMATION
  Report Type: 
  Country: None (occurrence: None)
  Receive Date: 20120113
  Receipt Date: 20120109
  Transmission Date: 20120608
  Serious: Yes (Other)
  Sender: FDA-Public Use
  Company Number: US-ALLERGAN-1200100US

PATIENT
  Age: 55 Year
  Sex: Female

DRUGS (6)
  1. NEVANAC [Suspect]
     Indication: CATARACT OPERATION
     Dosage: UNK
     Route: 047
     Dates: start: 20111103
  2. TETRACAINE HYDROCHLORIDE [Suspect]
     Indication: CATARACT OPERATION
     Dosage: UNK
     Route: 047
     Dates: start: 20111103
  3. BETADINE OPHTHALMIC [Concomitant]
     Dosage: UNK
     Dates: start: 20111103
  4. PRED FORTE [Suspect]
     Indication: CATARACT OPERATION
     Dosage: UNK
     Route: 047
     Dates: start: 20111103
  5. VIGAMOX [Suspect]
     Indication: CATARACT OPERATION
     Dosage: UNK
     Route: 047
     Dates: start: 20111103
  6. BSS [Suspect]
     Indication: CATARACT OPERATION
     Dosage: UNK
     Route: 031
     Dates: start: 20111103, end: 20111103

REACTIONS (1)
  - TOXIC ANTERIOR SEGMENT SYNDROME [None]
